FAERS Safety Report 9058542 (Version 1)
Quarter: 2013Q1

REPORT INFORMATION
  Report Type: Spontaneous
  Country: US (occurrence: US)
  Receive Date: 20130211
  Receipt Date: 20130211
  Transmission Date: 20140127
  Serious: Yes (Other)
  Sender: FDA-Public Use
  Company Number: US-JNJFOC-20130201011

PATIENT
  Sex: Female
  Weight: 65.77 kg

DRUGS (6)
  1. REMICADE [Suspect]
     Indication: SACROILIITIS
     Route: 042
     Dates: start: 20110916
  2. REMICADE [Suspect]
     Indication: IRITIS
     Route: 042
     Dates: start: 20110916
  3. REMICADE [Suspect]
     Indication: CROHN^S DISEASE
     Route: 042
     Dates: start: 20110916
  4. VITAMIN D [Concomitant]
     Route: 065
  5. ORAL CONTRACEPTIVES [Concomitant]
     Route: 048
  6. IBUPROFEN [Concomitant]
     Route: 065

REACTIONS (2)
  - Iritis [Unknown]
  - Psoriasis [Not Recovered/Not Resolved]
